FAERS Safety Report 9227308 (Version 1)
Quarter: 2013Q2

REPORT INFORMATION
  Report Type: Spontaneous
  Country: ZA (occurrence: None)
  Receive Date: 20130410
  Receipt Date: 20130410
  Transmission Date: 20140414
  Serious: Yes (Death)
  Sender: FDA-Public Use
  Company Number: 1667494

PATIENT
  Age: 67 Year
  Sex: Female

DRUGS (2)
  1. DEXMEDETOMIDINE HYDROCHLORIDE [Suspect]
     Dates: start: 20121102, end: 20121108
  2. TEICOPLANIN [Concomitant]

REACTIONS (3)
  - Off label use [None]
  - Arrhythmia [None]
  - Cachexia [None]
